FAERS Safety Report 24372359 (Version 1)
Quarter: 2024Q3

REPORT INFORMATION
  Report Type: Spontaneous
  Country: CN (occurrence: CN)
  Receive Date: 20240927
  Receipt Date: 20240927
  Transmission Date: 20241016
  Serious: Yes (Hospitalization, Other)
  Sender: RANBAXY
  Company Number: CN-SUN PHARMACEUTICAL INDUSTRIES LTD-2024R1-460901

PATIENT
  Age: 10 Year
  Sex: Female

DRUGS (1)
  1. PROPAFENONE [Suspect]
     Active Substance: PROPAFENONE
     Indication: Product used for unknown indication
     Dosage: 100 MILLIGRAM/50 TABLETS
     Route: 048

REACTIONS (7)
  - Toxicity to various agents [Unknown]
  - Dizziness [Unknown]
  - Ventricular tachycardia [Unknown]
  - Vomiting [Unknown]
  - Seizure [Unknown]
  - Loss of consciousness [Unknown]
  - Overdose [Unknown]
